FAERS Safety Report 6243523-5 (Version None)
Quarter: 2009Q2

REPORT INFORMATION
  Report Type: 
  Country: None (occurrence: None)
  Receive Date: 20090624
  Receipt Date: 20090617
  Transmission Date: 20091009
  Serious: Yes (Hospitalization)
  Sender: FDA-Public Use
  Company Number: FR-TEVA-199113USA

PATIENT
  Sex: Female

DRUGS (7)
  1. BISELECT [Suspect]
     Dosage: 2 DOSAGE FORMS, 1 D
     Route: 048
     Dates: start: 20090415, end: 20090507
  2. AMIODARONE HYDROCHLORIDE [Suspect]
     Dosage: 1 DOSAGE FORM (1 IN 1 DAY)
     Route: 048
     Dates: start: 20080601, end: 20090414
  3. ACETYLSALICYLIC ACID [Concomitant]
     Route: 048
  4. FUROSEMIDE [Concomitant]
     Route: 048
  5. PERINDOPRIL ERBUMINE [Concomitant]
  6. MANIDIPINE [Concomitant]
  7. SIMVASTATIN [Concomitant]

REACTIONS (1)
  - ORGANISING PNEUMONIA [None]
